FAERS Safety Report 4432483-5 (Version None)
Quarter: 2004Q3

REPORT INFORMATION
  Report Type: 
  Country: None (occurrence: None)
  Receive Date: 20040820
  Receipt Date: 20040805
  Transmission Date: 20050211
  Serious: Yes (Death)
  Sender: FDA-Public Use
  Company Number: 2004S1002336

PATIENT
  Age: 48 Year
  Sex: Male

DRUGS (6)
  1. CLOZAPINE [Suspect]
     Dosage: 75MG QD,ORAL
     Route: 048
  2. CLOZAPINE [Suspect]
     Dosage: 400MG HS, ORAL
     Route: 048
  3. SIMVASTATIN [Concomitant]
  4. ARIPIPRAZOLE [Concomitant]
  5. LEVOTHYROXINE SODIUM [Concomitant]
  6. BENZTROPINE MESYLATE [Concomitant]

REACTIONS (1)
  - DEATH [None]
